FAERS Safety Report 21125580 (Version 1)
Quarter: 2022Q3

REPORT INFORMATION
  Report Type: Spontaneous
  Country: DK (occurrence: DK)
  Receive Date: 20220725
  Receipt Date: 20220725
  Transmission Date: 20221027
  Serious: Yes (Hospitalization, Disabling, Other)
  Sender: FDA-Public Use
  Company Number: None

PATIENT
  Age: 74 Year
  Sex: Female

DRUGS (1)
  1. ATORVASTATIN CALCIUM [Suspect]
     Active Substance: ATORVASTATIN CALCIUM
     Indication: Cardiovascular event prophylaxis
     Dosage: 40 MG, 1X/DAY
     Route: 048
     Dates: start: 20190620

REACTIONS (3)
  - Immune-mediated myositis [Unknown]
  - Muscle necrosis [Unknown]
  - Muscle strain [Unknown]

NARRATIVE: CASE EVENT DATE: 20201023
